FAERS Safety Report 15999494 (Version 1)
Quarter: 2019Q1

REPORT INFORMATION
  Report Type: Spontaneous
  Country: US (occurrence: US)
  Receive Date: 20190222
  Receipt Date: 20190222
  Transmission Date: 20190418
  Serious: Yes (Other)
  Sender: FDA-Public Use
  Company Number: None

PATIENT
  Age: 8 Year
  Sex: Female
  Weight: 27 kg

DRUGS (2)
  1. JUICE PLUS [Concomitant]
     Active Substance: DIETARY SUPPLEMENT
  2. IMODIUM MULTI-SYMPTOM RELIEF [Suspect]
     Active Substance: DIMETHICONE\LOPERAMIDE HYDROCHLORIDE
     Indication: DIARRHOEA
     Dosage: ?          QUANTITY:1 CAPSULE(S);OTHER FREQUENCY:ONE THEN .5 X2/BM;?
     Route: 048
     Dates: start: 20190219, end: 20190219

REACTIONS (4)
  - Hallucination [None]
  - Suicidal ideation [None]
  - Product use complaint [None]
  - Fear [None]

NARRATIVE: CASE EVENT DATE: 20190219
